FAERS Safety Report 9638986 (Version 1)
Quarter: 2013Q4

REPORT INFORMATION
  Report Type: Spontaneous
  Country: IT (occurrence: None)
  Receive Date: 20131018
  Receipt Date: 20131018
  Transmission Date: 20140711
  Serious: Yes (Life-Threatening)
  Sender: FDA-Public Use
  Company Number: 2013P1020062

PATIENT
  Sex: 0

DRUGS (2)
  1. PROPRANOLOL [Suspect]
     Indication: RETINOPATHY OF PREMATURITY
     Dosage: 0.5 MG/KG; Q6H; PO
     Route: 048
  2. OXYGEN [Concomitant]

REACTIONS (1)
  - Bradycardia neonatal [None]
